FAERS Safety Report 10129422 (Version 1)
Quarter: 2014Q2

REPORT INFORMATION
  Report Type: Spontaneous
  Country: US (occurrence: US)
  Receive Date: 20140428
  Receipt Date: 20140428
  Transmission Date: 20141212
  Serious: Yes (Other)
  Sender: FDA-Public Use
  Company Number: US-BEH-2014041978

PATIENT
  Sex: Female
  Weight: 36 kg

DRUGS (18)
  1. HIZENTRA [Suspect]
     Indication: HYPOGAMMAGLOBULINAEMIA
     Route: 058
  2. EQ OMEPRAZOLE DR [Concomitant]
  3. ACETAMINOPHEN [Concomitant]
  4. DIPHENHYDRAMINE [Concomitant]
  5. LIDOCAINE/PRILOCAINE [Concomitant]
  6. EPI PEN [Concomitant]
  7. BECONASE AQ [Concomitant]
  8. OMNARIS 50 [Concomitant]
  9. PROMETHAZINE-CODEINE [Concomitant]
  10. SULFAMETHOXAZOLE TMP [Concomitant]
  11. NAPROXEN [Concomitant]
  12. ZANTAC [Concomitant]
     Dosage: 75
  13. ALLEGRA [Concomitant]
     Dosage: 30
  14. ZOFRAN [Concomitant]
  15. CALCIUM-MAG-ZINC-VIT D [Concomitant]
  16. CHILD MULTIVITAMINS [Concomitant]
  17. BOOST KID ESSENTIALS [Concomitant]
  18. VITAMIN C [Concomitant]

REACTIONS (2)
  - Infusion site infection [Not Recovered/Not Resolved]
  - Infusion site rash [Not Recovered/Not Resolved]
